FAERS Safety Report 9553006 (Version 1)
Quarter: 2013Q3

REPORT INFORMATION
  Report Type: Spontaneous
  Country: US (occurrence: US)
  Receive Date: 20130925
  Receipt Date: 20130925
  Transmission Date: 20140515
  Serious: Yes (Other)
  Sender: FDA-Public Use
  Company Number: US-ABBVIE-13P-163-1150217-00

PATIENT
  Age: 36 Year
  Sex: Female

DRUGS (1)
  1. SYNTHROID [Suspect]
     Indication: HYPOTHYROIDISM
     Dates: start: 200701

REACTIONS (1)
  - Abortion spontaneous [Unknown]
